FAERS Safety Report 8553778-X (Version None)
Quarter: 2012Q3

REPORT INFORMATION
  Report Type: 
  Country: None (occurrence: None)
  Receive Date: 20120731
  Receipt Date: 20101122
  Transmission Date: 20120928
  Serious: Yes (Other)
  Sender: FDA-Public Use
  Company Number: GB-GLAXOSMITHKLINE-B0818966A

PATIENT
  Age: 22 Year
  Sex: Male

DRUGS (3)
  1. PAROXETINE HCL [Suspect]
     Indication: DEPRESSION
     Route: 065
  2. CITALOPRAM HYDROBROMIDE [Concomitant]
  3. UNKNOWN [Concomitant]

REACTIONS (7)
  - SELF-MEDICATION [None]
  - SUICIDAL IDEATION [None]
  - INTENTIONAL SELF-INJURY [None]
  - EXPOSURE TO CHEMICAL POLLUTION [None]
  - CONFUSIONAL STATE [None]
  - DISTURBANCE IN SOCIAL BEHAVIOUR [None]
  - ACCIDENTAL EXPOSURE [None]
